FAERS Safety Report 12693575 (Version 1)
Quarter: 2016Q3

REPORT INFORMATION
  Report Type: Spontaneous
  Country: JP (occurrence: JP)
  Receive Date: 20160829
  Receipt Date: 20160829
  Transmission Date: 20161109
  Serious: Yes (Other)
  Sender: FDA-Public Use
  Company Number: JP-PFIZER INC-2016402308

PATIENT
  Age: 7 Decade
  Sex: Female
  Weight: 55.7 kg

DRUGS (5)
  1. SPIRIVA [Concomitant]
     Active Substance: TIOTROPIUM BROMIDE MONOHYDRATE
     Indication: CHRONIC OBSTRUCTIVE PULMONARY DISEASE
  2. CELECOX [Concomitant]
     Active Substance: CELECOXIB
  3. LYRICA [Suspect]
     Active Substance: PREGABALIN
     Indication: PAIN
     Dosage: 150 MG, 1X/DAY
     Route: 048
  4. CANDESARTAN [Concomitant]
     Active Substance: CANDESARTAN
     Indication: HYPERTENSION
  5. TEPRENONE [Concomitant]
     Active Substance: TEPRENONE

REACTIONS (5)
  - Increased appetite [Recovered/Resolved]
  - Weight increased [Recovering/Resolving]
  - Diabetes mellitus [Unknown]
  - Oedema [Recovering/Resolving]
  - Glucose tolerance impaired [Recovering/Resolving]

NARRATIVE: CASE EVENT DATE: 201505
